FAERS Safety Report 9090660 (Version 1)
Quarter: 2013Q1

REPORT INFORMATION
  Report Type: Report from Study
  Country: US (occurrence: US)
  Receive Date: 20130130
  Receipt Date: 20130130
  Transmission Date: 20140127
  Serious: No
  Sender: FDA-Public Use
  Company Number: US-ABBOTT-12P-163-0979883-00

PATIENT
  Age: 44 Year
  Sex: Male

DRUGS (3)
  1. HUMIRA [Suspect]
     Indication: PSORIATIC ARTHROPATHY
  2. VERAPAMIL ER [Concomitant]
     Indication: HYPERTENSION
     Dosage: DAILY
  3. LISINOPRIL [Concomitant]
     Indication: HYPERTENSION
     Dosage: DAILY

REACTIONS (3)
  - Pain [Not Recovered/Not Resolved]
  - Influenza [Recovered/Resolved]
  - Drug ineffective [Not Recovered/Not Resolved]
